FAERS Safety Report 7604663-9 (Version None)
Quarter: 2011Q3

REPORT INFORMATION
  Report Type: 
  Country: None (occurrence: None)
  Receive Date: 20110712
  Receipt Date: 20110628
  Transmission Date: 20111222
  Serious: Yes (Death, Life-Threatening)
  Sender: FDA-Public Use
  Company Number: JP-MYLANLABS-2011S1011714

PATIENT
  Age: 75 Year
  Sex: Male
  Weight: 50.2 kg

DRUGS (14)
  1. KYTRIL [Concomitant]
     Indication: PREMEDICATION
     Route: 042
     Dates: start: 20110426, end: 20110426
  2. CARBOPLATIN [Suspect]
     Route: 041
     Dates: start: 20110517, end: 20110517
  3. PACLITAXEL [Suspect]
     Indication: LUNG NEOPLASM MALIGNANT
     Route: 041
     Dates: start: 20110426, end: 20110426
  4. RESTAMIN /00000401/ [Concomitant]
     Indication: PREMEDICATION
     Route: 042
     Dates: start: 20110426, end: 20110426
  5. ZANTAC [Concomitant]
     Indication: PREMEDICATION
     Route: 042
     Dates: start: 20110426, end: 20110426
  6. EQUA [Suspect]
     Indication: DIABETES MELLITUS
     Route: 048
  7. AMARYL [Suspect]
     Indication: DIABETES MELLITUS
     Route: 048
  8. OXYCONTIN [Suspect]
     Indication: CANCER PAIN
     Route: 048
  9. LOXONIN [Suspect]
     Indication: CANCER PAIN
     Route: 048
  10. CARBOPLATIN [Suspect]
     Indication: LUNG NEOPLASM MALIGNANT
     Route: 041
     Dates: start: 20110426, end: 20110426
  11. PACLITAXEL [Suspect]
     Route: 041
     Dates: start: 20110517, end: 20110517
  12. ZOMETA [Suspect]
     Indication: METASTASES TO BONE
     Route: 041
  13. RABEPRAZOLE SODIUM [Suspect]
     Indication: PROPHYLAXIS AGAINST GASTROINTESTINAL ULCER
     Route: 048
  14. DEXAMETHASONE SODIUM PHOSPHATE [Concomitant]
     Indication: PREMEDICATION
     Route: 042
     Dates: start: 20110426, end: 20110426

REACTIONS (4)
  - CARDIAC FAILURE CONGESTIVE [None]
  - INTERSTITIAL LUNG DISEASE [None]
  - DISSEMINATED INTRAVASCULAR COAGULATION [None]
  - ERYTHEMA [None]
